FAERS Safety Report 6359463-7 (Version None)
Quarter: 2009Q3

REPORT INFORMATION
  Report Type: 
  Country: None (occurrence: None)
  Receive Date: 20090917
  Receipt Date: 20090914
  Transmission Date: 20100115
  Serious: Yes (Death)
  Sender: FDA-Public Use
  Company Number: JP-BAYER-200910745BYL

PATIENT
  Age: 56 Year
  Sex: Male
  Weight: 55 kg

DRUGS (8)
  1. FLUDARA [Suspect]
     Indication: ACUTE LYMPHOCYTIC LEUKAEMIA
     Dosage: AS USED: 30 MG/M2  UNIT DOSE: 50 MG
     Route: 042
     Dates: start: 20080930, end: 20081005
  2. ALKERAN [Concomitant]
     Indication: ACUTE LYMPHOCYTIC LEUKAEMIA
     Dosage: AS USED: 40 MG/M2
     Route: 042
     Dates: start: 20081004, end: 20081005
  3. BUSULFEX [Concomitant]
     Indication: ACUTE LYMPHOCYTIC LEUKAEMIA
     Dosage: AS USED: 3.2 MG/KG
     Route: 042
     Dates: start: 20081001, end: 20081004
  4. DEPAKENE [Concomitant]
     Indication: CONVULSION PROPHYLAXIS
     Dosage: AS USED: 800 MG
     Route: 048
     Dates: start: 20080926, end: 20081001
  5. CONCENTRATED RED CELLS [Concomitant]
     Route: 042
     Dates: start: 20081002, end: 20081025
  6. PLATELETS [Concomitant]
     Route: 042
     Dates: start: 20081002, end: 20081027
  7. CELLCEPT [Concomitant]
     Dosage: TOTAL DAILY DOSE: 2000 MG  UNIT DOSE: 250 MG
     Route: 048
     Dates: start: 20081005, end: 20081009
  8. PROGRAF [Concomitant]
     Dosage: AS USED: 0.12-0.04 ML
     Route: 041
     Dates: start: 20081008, end: 20081019

REACTIONS (2)
  - ENGRAFT FAILURE [None]
  - PNEUMONIA RESPIRATORY SYNCYTIAL VIRAL [None]
